FAERS Safety Report 7357032-3 (Version None)
Quarter: 2011Q1

REPORT INFORMATION
  Report Type: 
  Country: None (occurrence: None)
  Receive Date: 20110310
  Receipt Date: 20110310
  Transmission Date: 20110831
  Serious: Yes (Life-Threatening)
  Sender: FDA-Public Use
  Company Number: None

PATIENT
  Age: 49 Year
  Sex: Male
  Weight: 75.7 kg

DRUGS (1)
  1. DROTRECOGIN ALFA ELI LILLY [Suspect]
     Indication: SEPTIC SHOCK
     Dosage: 24 MCG/KG/HOUR CONTINUE INFUSION IV DRIP
     Route: 041
     Dates: start: 20110304, end: 20110306

REACTIONS (4)
  - GASTRIC HAEMORRHAGE [None]
  - GAZE PALSY [None]
  - BRAIN MIDLINE SHIFT [None]
  - HAEMORRHAGE INTRACRANIAL [None]
